FAERS Safety Report 5018276-9 (Version None)
Quarter: 2006Q2

REPORT INFORMATION
  Report Type: 
  Country: None (occurrence: None)
  Receive Date: 20060530
  Receipt Date: 20060517
  Transmission Date: 20061013
  Serious: Yes (Other)
  Sender: FDA-Public Use
  Company Number: 2006066214

PATIENT
  Age: 51 Year
  Sex: Female

DRUGS (4)
  1. DIFLUCAN [Suspect]
     Indication: FUNGAL INFECTION
     Dates: start: 19990101
  2. MONISTAT (MICONAZOLE NITRATE) [Concomitant]
  3. SEPTRA [Concomitant]
  4. INSULIN [Concomitant]

REACTIONS (4)
  - AUTOIMMUNE HEPATITIS [None]
  - BLOOD ALKALINE PHOSPHATASE INCREASED [None]
  - DIARRHOEA [None]
  - WEIGHT DECREASED [None]
